FAERS Safety Report 17461494 (Version 1)
Quarter: 2020Q1

REPORT INFORMATION
  Report Type: Spontaneous
  Country: US (occurrence: US)
  Receive Date: 20200226
  Receipt Date: 20200226
  Transmission Date: 20200409
  Serious: Yes (Death, Other)
  Sender: FDA-Public Use
  Company Number: US-JIANGSU HENGRUI MEDICINE CO., LTD.-2080942

PATIENT
  Age: 41 Year
  Sex: Male

DRUGS (6)
  1. EPOCH:CYCLOPHOSPHAMIDE, DOXORUBICIN HYDROCHLORIDE, ETOPOSIDE, PREDNISO [Suspect]
     Active Substance: CYCLOPHOSPHAMIDE\DOXORUBICIN\ETOPOSIDE\PREDNISONE\VINCRISTINE
     Route: 065
     Dates: start: 20190222
  2. FLUDARABINE [Suspect]
     Active Substance: FLUDARABINE PHOSPHATE
     Route: 065
     Dates: start: 20191023, end: 20191025
  3. GEMOX :GEMCITABINE, OXALIPLATIN [Suspect]
     Active Substance: GEMCITABINE HYDROCHLORIDE\OXALIPLATIN
     Route: 065
     Dates: start: 20190926
  4. CYCLOPHOSPHAMIDE FOR INJECTION USP, 500 MG, 1 G AND 2 G PER SINGLE-DOS [Suspect]
     Active Substance: CYCLOPHOSPHAMIDE
     Indication: DIFFUSE LARGE B-CELL LYMPHOMA
     Route: 041
     Dates: start: 20190131
  5. CHOP:CYCLOPHOSPHAMIDE, DOXORUBICIN HYDROCHLORIDE, PREDNISONE, VINCRIST [Suspect]
     Active Substance: CYCLOPHOSPHAMIDE\DOXORUBICIN\PREDNISONE\VINCRISTINE
     Route: 065
     Dates: start: 20190131
  6. HYPER CVAD:CYCLOPHOSPHAMIDE, CYTARABINE, DEXAMETHASONE, DOXORUBICIN, F [Suspect]
     Active Substance: CYCLOPHOSPHAMIDE\DEXAMETHASONE\DOXORUBICIN\VINCRISTINE
     Route: 065
     Dates: start: 20190716

REACTIONS (16)
  - Death [Fatal]
  - Ascites [Unknown]
  - Muscle injury [Unknown]
  - Klebsiella bacteraemia [Unknown]
  - Fungaemia [Unknown]
  - Pancytopenia [Unknown]
  - Febrile neutropenia [Unknown]
  - Abdominal distension [Unknown]
  - Neoplasm progression [Unknown]
  - Tumour lysis syndrome [Unknown]
  - Hydronephrosis [Recovering/Resolving]
  - Gastrointestinal haemorrhage [Unknown]
  - Acute kidney injury [Unknown]
  - Anal abscess [Unknown]
  - Cytopenia [Unknown]
  - Colitis [Unknown]

NARRATIVE: CASE EVENT DATE: 20190323
